FAERS Safety Report 5121270-0 (Version None)
Quarter: 2006Q4

REPORT INFORMATION
  Report Type: 
  Country: None (occurrence: None)
  Receive Date: 20061005
  Receipt Date: 20060822
  Transmission Date: 20070319
  Serious: Yes (Hospitalization)
  Sender: FDA-Public Use
  Company Number: JP-ABBOTT-06P-087-0342454-00

PATIENT
  Sex: Male
  Weight: 21 kg

DRUGS (4)
  1. ERYTHROMYCIN [Suspect]
     Indication: CHRONIC SINUSITIS
     Route: 048
     Dates: start: 20060719, end: 20060726
  2. ERYTHROMYCIN [Suspect]
     Indication: HYPERSENSITIVITY
     Route: 048
     Dates: start: 20060808, end: 20060808
  3. PEMIROLAST POTASSIUM [Concomitant]
     Indication: CHRONIC SINUSITIS
     Route: 048
     Dates: start: 20060719, end: 20060726
  4. PEMIROLAST POTASSIUM [Concomitant]
     Indication: HYPERSENSITIVITY
     Route: 048
     Dates: start: 20060808, end: 20060808

REACTIONS (4)
  - ABDOMINAL PAIN [None]
  - HEPATIC FUNCTION ABNORMAL [None]
  - PYREXIA [None]
  - VOMITING [None]
